FAERS Safety Report 9287164 (Version 2)
Quarter: 2013Q2

REPORT INFORMATION
  Report Type: Spontaneous
  Country: GB (occurrence: GB)
  Receive Date: 20130513
  Receipt Date: 20130604
  Transmission Date: 20140414
  Serious: Yes (Other)
  Sender: FDA-Public Use
  Company Number: GB-009507513-1305GBR005245

PATIENT
  Age: 59 Year
  Sex: Male
  Weight: 92.7 kg

DRUGS (2)
  1. ZOCOR [Suspect]
     Dosage: 20 MG, UNK
     Route: 048
     Dates: start: 20121214, end: 20130426
  2. LEVOTHYROXINE SODIUM [Concomitant]

REACTIONS (4)
  - Tendonitis [Unknown]
  - Discomfort [Unknown]
  - Iliotibial band syndrome [Unknown]
  - Arthralgia [Not Recovered/Not Resolved]
